FAERS Safety Report 10771057 (Version 1)
Quarter: 2015Q1

REPORT INFORMATION
  Report Type: Spontaneous
  Country: US (occurrence: US)
  Receive Date: 20150206
  Receipt Date: 20150206
  Transmission Date: 20150721
  Serious: No
  Sender: FDA-Public Use
  Company Number: US-GLAXOSMITHKLINE-US2014033199

PATIENT
  Age: 69 Year
  Sex: Male

DRUGS (12)
  1. MUCINEX [Concomitant]
     Active Substance: GUAIFENESIN
  2. ANORO ELLIPTA [Suspect]
     Active Substance: UMECLIDINIUM BROMIDE\VILANTEROL TRIFENATATE
     Indication: ASTHMA
     Dosage: 1 PUFF(S), QD
     Route: 055
     Dates: start: 20141205
  3. FENOFIBRATE. [Concomitant]
     Active Substance: FENOFIBRATE
  4. FISH OIL [Concomitant]
     Active Substance: FISH OIL
  5. PRAVASTATIN [Concomitant]
     Active Substance: PRAVASTATIN\PRAVASTATIN SODIUM
  6. ANORO ELLIPTA [Suspect]
     Active Substance: UMECLIDINIUM BROMIDE\VILANTEROL TRIFENATATE
     Indication: CHRONIC OBSTRUCTIVE PULMONARY DISEASE
  7. ASPIRIN. [Concomitant]
     Active Substance: ASPIRIN
  8. CLOBETASOL FOAM [Concomitant]
  9. DESONIDE CREAM [Concomitant]
  10. SINGULAIR [Concomitant]
     Active Substance: MONTELUKAST SODIUM
  11. CLOBETASOL CREAM [Concomitant]
     Active Substance: CLOBETASOL
  12. VITAMIN C [Concomitant]
     Active Substance: ASCORBIC ACID

REACTIONS (1)
  - Headache [Recovered/Resolved]

NARRATIVE: CASE EVENT DATE: 20141205
